FAERS Safety Report 24809918 (Version 2)
Quarter: 2025Q1

REPORT INFORMATION
  Report Type: Report from Study
  Country: US (occurrence: US)
  Receive Date: 20250106
  Receipt Date: 20250117
  Transmission Date: 20250409
  Serious: Yes (Hospitalization, Other)
  Sender: GILEAD
  Company Number: US-GILEAD-2025-0698719

PATIENT
  Sex: Female

DRUGS (4)
  1. AMBRISENTAN [Suspect]
     Active Substance: AMBRISENTAN
     Indication: Pulmonary arterial hypertension
     Dosage: 10 MG, QD
     Route: 065
     Dates: start: 20230907
  2. UPTRAVI [Concomitant]
     Active Substance: SELEXIPAG
  3. ADEMPAS [Concomitant]
     Active Substance: RIOCIGUAT
  4. ELIQUIS [Concomitant]
     Active Substance: APIXABAN

REACTIONS (3)
  - Acute kidney injury [Unknown]
  - Hepatic failure [Unknown]
  - Pneumonia fungal [Unknown]
